FAERS Safety Report 15274540 (Version 1)
Quarter: 2018Q3

REPORT INFORMATION
  Report Type: Report from Study
  Country: JP (occurrence: JP)
  Receive Date: 20180814
  Receipt Date: 20180814
  Transmission Date: 20181010
  Serious: Yes (Death)
  Sender: FDA-Public Use
  Company Number: JP-TEVA-2018-JP-942289

PATIENT
  Age: 4 Decade
  Sex: Male

DRUGS (8)
  1. NEDAPLATIN [Suspect]
     Active Substance: NEDAPLATIN
     Indication: GERM CELL CANCER METASTATIC
     Dosage: THREE CYCLES
     Route: 065
  2. IFOSFAMIDE. [Suspect]
     Active Substance: IFOSFAMIDE
     Indication: GERM CELL CANCER METASTATIC
     Dosage: SIX CYCLES
     Route: 065
  3. BLEOMYCIN [Concomitant]
     Active Substance: BLEOMYCIN SULFATE
     Indication: GERM CELL CANCER METASTATIC
     Route: 065
  4. GEMCITABINE [Concomitant]
     Active Substance: GEMCITABINE\GEMCITABINE HYDROCHLORIDE
     Indication: GERM CELL CANCER METASTATIC
     Route: 065
  5. CISPLATIN. [Suspect]
     Active Substance: CISPLATIN
     Indication: GERM CELL CANCER METASTATIC
     Dosage: 16 CYCLES
     Route: 065
  6. IRINOTECAN [Concomitant]
     Active Substance: IRINOTECAN
     Indication: GERM CELL CANCER METASTATIC
     Route: 065
  7. ETOPOSIDE. [Suspect]
     Active Substance: ETOPOSIDE
     Indication: GERM CELL CANCER METASTATIC
     Dosage: SIX CYCLES
     Route: 065
  8. PACLITAXEL. [Concomitant]
     Active Substance: PACLITAXEL
     Indication: GERM CELL CANCER METASTATIC
     Route: 065

REACTIONS (1)
  - Myelodysplastic syndrome [Fatal]
